FAERS Safety Report 7215665-9 (Version None)
Quarter: 2011Q1

REPORT INFORMATION
  Report Type: 
  Country: None (occurrence: None)
  Receive Date: 20110107
  Receipt Date: 20110103
  Transmission Date: 20110831
  Serious: Yes (Life-Threatening)
  Sender: FDA-Public Use
  Company Number: FR-ASTRAZENECA-2011SE00134

PATIENT
  Age: 22315 Day
  Sex: Female

DRUGS (10)
  1. KETAMINE [Suspect]
     Indication: GENERAL ANAESTHESIA
     Dosage: ONE SINGLE DOSE
     Route: 042
     Dates: start: 20100709
  2. SKENAN E.R [Concomitant]
     Route: 042
     Dates: start: 20100709
  3. DIPRIVAN [Suspect]
     Indication: GENERAL ANAESTHESIA
     Dosage: ONE SINGLE DOSE
     Route: 042
     Dates: start: 20100709
  4. FUIMUCIL [Suspect]
     Indication: GENERAL ANAESTHESIA
     Dosage: ONE SINGLE DOSE
     Route: 042
     Dates: start: 20100709
  5. OGAST [Concomitant]
     Route: 042
  6. TAHOR [Concomitant]
     Route: 042
  7. ULTIVA [Suspect]
     Indication: GENERAL ANAESTHESIA
     Dosage: ONE SINGLE DOSE
     Route: 042
     Dates: start: 20100709
  8. CEFAZOLIN [Suspect]
     Dosage: ONE SINGLE DOSE
     Route: 042
     Dates: start: 20100709
  9. NIMBEX [Suspect]
     Indication: GENERAL ANAESTHESIA
     Dosage: ONE SINGLE DOSE
     Route: 042
     Dates: start: 20100709
  10. PLAVIX [Concomitant]
     Route: 048
     Dates: start: 20100704, end: 20100709

REACTIONS (2)
  - SKIN TEST NEGATIVE [None]
  - ANAPHYLACTIC SHOCK [None]
